FAERS Safety Report 4737822-3 (Version None)
Quarter: 2005Q3

REPORT INFORMATION
  Report Type: 
  Country: None (occurrence: None)
  Receive Date: 20050805
  Receipt Date: 20050620
  Transmission Date: 20060218
  Serious: Yes (Hospitalization, Disabling)
  Sender: FDA-Public Use
  Company Number: B0376853A

PATIENT
  Age: 26 Year
  Sex: Female

DRUGS (3)
  1. RETROVIR [Suspect]
     Dates: end: 20040801
  2. COMBIVIR [Concomitant]
  3. KALETRA [Concomitant]

REACTIONS (6)
  - CARDIAC FAILURE ACUTE [None]
  - CHEST PAIN [None]
  - CONGESTIVE CARDIOMYOPATHY [None]
  - DRUG EXPOSURE DURING PREGNANCY [None]
  - SYNCOPE [None]
  - TREATMENT NONCOMPLIANCE [None]
